FAERS Safety Report 8778041 (Version 1)
Quarter: 2012Q4

REPORT INFORMATION
  Report Type: 
  Country: JP (occurrence: JP)
  Receive Date: 20120914
  Receipt Date: 20120914
  Transmission Date: 20130627
  Serious: Yes (Death, Hospitalization)
  Sender: FDA-Public Use
  Company Number: JP-B.I. PHARMACEUTICALS,INC./RIDGEFIELD-2012-BP-22483NB

PATIENT
  Age: 73 Year
  Sex: Male

DRUGS (4)
  1. MICARDIS [Suspect]
     Indication: HYPERTENSION
     Dosage: 20 mg
     Route: 048
     Dates: start: 20101023, end: 20110422
  2. NARCARICIN [Suspect]
     Indication: HYPERURICAEMIA
     Dosage: 50 mg
     Route: 048
     Dates: start: 20101023, end: 20110422
  3. AMLODIPINE [Concomitant]
     Indication: HYPERTENSION
     Dosage: 2.5 mg
     Route: 048
     Dates: start: 20101113, end: 20110420
  4. CRESTOR [Concomitant]
     Indication: HYPERLIPIDAEMIA
     Dosage: 2.5 mg
     Route: 048
     Dates: start: 20101228, end: 20110228

REACTIONS (1)
  - Hepatitis fulminant [Fatal]
